FAERS Safety Report 8173066-3 (Version None)
Quarter: 2012Q1

REPORT INFORMATION
  Report Type: 
  Country: None (occurrence: None)
  Receive Date: 20120223
  Receipt Date: 20120208
  Transmission Date: 20120608
  Serious: Yes (Other)
  Sender: FDA-Public Use
  Company Number: JPI-P-019473

PATIENT
  Age: 45 Year
  Sex: Female
  Weight: 144.6975 kg

DRUGS (3)
  1. XYREM [Suspect]
     Indication: FIBROMYALGIA
     Dosage: ORAL (IST DOSE 4 GM/ 2ND DOSE 2 GM), ORAL
     Route: 048
     Dates: start: 20120120
  2. XYREM [Suspect]
     Indication: NARCOLEPSY
     Dosage: ORAL (IST DOSE 4 GM/ 2ND DOSE 2 GM), ORAL
     Route: 048
     Dates: start: 20120120
  3. XYREM [Suspect]
     Indication: INSOMNIA
     Dosage: ORAL (IST DOSE 4 GM/ 2ND DOSE 2 GM), ORAL
     Route: 048
     Dates: start: 20120120

REACTIONS (3)
  - VOCAL CORD PARALYSIS [None]
  - NEURALGIA [None]
  - THYROID NEOPLASM [None]
